FAERS Safety Report 8280951-0 (Version None)
Quarter: 2012Q2

REPORT INFORMATION
  Report Type: 
  Country: None (occurrence: None)
  Receive Date: 20120412
  Receipt Date: 20120409
  Transmission Date: 20120825
  Serious: Yes (Hospitalization)
  Sender: FDA-Public Use
  Company Number: TR-ABBOTT-12P-161-0923308-00

PATIENT
  Sex: Male
  Weight: 56 kg

DRUGS (5)
  1. LANSOR [Concomitant]
     Indication: GASTRITIS
     Dosage: X 1
     Route: 048
     Dates: start: 20110701
  2. ZEMPLAR [Suspect]
     Indication: HYPERPARATHYROIDISM
     Route: 042
     Dates: start: 20120103
  3. ARANESP [Concomitant]
     Indication: ANAEMIA
     Route: 058
     Dates: start: 20120303
  4. VENOFER [Concomitant]
     Indication: ANAEMIA
     Route: 048
     Dates: start: 20120103
  5. RENAGEL [Concomitant]
     Indication: HYPERPARATHYROIDISM
     Dosage: X 3
     Route: 042
     Dates: start: 20110701

REACTIONS (2)
  - SPLENOMEGALY [None]
  - HYPERCHLORHYDRIA [None]
